FAERS Safety Report 5080968-3 (Version None)
Quarter: 2006Q3

REPORT INFORMATION
  Report Type: 
  Country: None (occurrence: None)
  Receive Date: 20060810
  Receipt Date: 20060804
  Transmission Date: 20061208
  Serious: Yes (Death)
  Sender: FDA-Public Use
  Company Number: 009-C5013-06070887

PATIENT
  Age: 72 Year
  Sex: Male
  Weight: 85 kg

DRUGS (9)
  1. CC-5013 (LENALIDOMIDE) (CAPSULES) [Suspect]
     Indication: MULTIPLE MYELOMA
     Dosage: 25 MG, ORAL
     Route: 048
     Dates: start: 20060717, end: 20060722
  2. NEUROBION (NEUROBION FOR INJECTION) [Concomitant]
  3. LOVENOX [Concomitant]
  4. DEXAMETHASONE TAB [Concomitant]
  5. ALLOPURINOL [Concomitant]
  6. LISINOPRIL [Concomitant]
  7. LANITOP (METILDIGOXIN) [Concomitant]
  8. LASILACTON (OSYROL-LASIX) [Concomitant]
  9. PANTOPRAZOLE SODIUM [Concomitant]

REACTIONS (4)
  - BONE DISORDER [None]
  - DISEASE PROGRESSION [None]
  - NEUTROPENIA [None]
  - PNEUMONIA [None]
